FAERS Safety Report 20638857 (Version 1)
Quarter: 2022Q1

REPORT INFORMATION
  Report Type: Spontaneous
  Country: GB (occurrence: GB)
  Receive Date: 20220325
  Receipt Date: 20220325
  Transmission Date: 20220423
  Serious: Yes (Death)
  Sender: FDA-Public Use
  Company Number: GB-MALLINCKRODT-T202201306

PATIENT

DRUGS (1)
  1. UVADEX [Suspect]
     Active Substance: METHOXSALEN
     Indication: Acute graft versus host disease
     Dosage: UNK (EXTRACORPOREAL)
     Route: 050

REACTIONS (3)
  - Acute graft versus host disease [Fatal]
  - Disease progression [Fatal]
  - Product use in unapproved indication [Unknown]
